FAERS Safety Report 9858331 (Version 1)
Quarter: 2014Q1

REPORT INFORMATION
  Report Type: Spontaneous
  Country: US (occurrence: None)
  Receive Date: 20140130
  Receipt Date: 20140130
  Transmission Date: 20141002
  Serious: Yes (Other)
  Sender: FDA-Public Use
  Company Number: None

PATIENT
  Age: 33 Year
  Sex: Male
  Weight: 97.52 kg

DRUGS (1)
  1. ALERGY RELIEF, 10 MG, SAFEWAY [Suspect]
     Dosage: TAKEN BY MOUTH
     Dates: start: 20120301, end: 20130130

REACTIONS (8)
  - Feeling abnormal [None]
  - Pruritus [None]
  - Insomnia [None]
  - Irritability [None]
  - Mechanical urticaria [None]
  - Pain [None]
  - Discomfort [None]
  - Urticaria [None]
